FAERS Safety Report 12172864 (Version 2)
Quarter: 2016Q3

REPORT INFORMATION
  Report Type: Spontaneous
  Country: US (occurrence: US)
  Receive Date: 20160311
  Receipt Date: 20160705
  Transmission Date: 20161109
  Serious: Yes (Other)
  Sender: FDA-Public Use
  Company Number: US-BAYER-2016-045485

PATIENT
  Age: 27 Year
  Sex: Female
  Weight: 124.72 kg

DRUGS (3)
  1. MIRENA [Suspect]
     Active Substance: LEVONORGESTREL
     Indication: CONTRACEPTION
     Dosage: 20 MCG/24HR, CONT
     Route: 015
     Dates: start: 20081212, end: 20101110
  2. HYDROCODONE [Concomitant]
     Active Substance: HYDROCODONE
  3. PROZAC [Concomitant]
     Active Substance: FLUOXETINE HYDROCHLORIDE

REACTIONS (7)
  - Uterine perforation [None]
  - Pain [None]
  - Depression [None]
  - Anxiety [None]
  - Device issue [None]
  - Peritoneal adhesions [None]
  - Menorrhagia [None]

NARRATIVE: CASE EVENT DATE: 2009
